FAERS Safety Report 15065605 (Version 2)
Quarter: 2018Q3

REPORT INFORMATION
  Report Type: Spontaneous
  Country: US (occurrence: US)
  Receive Date: 20180626
  Receipt Date: 20180716
  Transmission Date: 20181010
  Serious: No
  Sender: FDA-Public Use
  Company Number: US-PFIZER INC-2018254295

PATIENT
  Age: 74 Year
  Sex: Female

DRUGS (2)
  1. CIPROFLOXACIN. [Suspect]
     Active Substance: CIPROFLOXACIN
     Indication: BLADDER DISORDER
     Dosage: 500 MG, 2X/DAY (ONE TABLET EVERY 12 HOURS X3DAYS)
     Dates: start: 20170106
  2. CIPROFLOXACIN. [Suspect]
     Active Substance: CIPROFLOXACIN
     Indication: URINARY TRACT INFECTION

REACTIONS (4)
  - Pain in extremity [Unknown]
  - Condition aggravated [Unknown]
  - Product use in unapproved indication [Recovered/Resolved]
  - Tendon rupture [Not Recovered/Not Resolved]

NARRATIVE: CASE EVENT DATE: 20170106
